FAERS Safety Report 7688572-5 (Version None)
Quarter: 2011Q3

REPORT INFORMATION
  Report Type: 
  Country: None (occurrence: None)
  Receive Date: 20110817
  Receipt Date: 20110808
  Transmission Date: 20111222
  Serious: Yes (Other)
  Sender: FDA-Public Use
  Company Number: CH-JNJFOC-20110803050

PATIENT
  Age: 85 Year
  Sex: Female

DRUGS (7)
  1. HERBAL EXTRACTS NOS [Concomitant]
     Dosage: IN THE MORNING
     Route: 065
  2. HALDOL [Suspect]
     Route: 048
     Dates: start: 20110725, end: 20110806
  3. ASPIRIN [Concomitant]
     Dosage: IN THE MORNING
     Route: 065
  4. MEMANTINE HYDROCHLORIDE [Concomitant]
     Dosage: IN THE MORNING
     Route: 065
  5. PARAGOL [Concomitant]
     Route: 065
  6. HALDOL [Suspect]
     Indication: AGITATION
     Route: 048
  7. SEROQUEL [Concomitant]
     Dosage: IN THE EVENING
     Route: 065

REACTIONS (2)
  - LOSS OF CONSCIOUSNESS [None]
  - HYPOGLYCAEMIA [None]
